FAERS Safety Report 20803365 (Version 1)
Quarter: 2022Q2

REPORT INFORMATION
  Report Type: Spontaneous
  Country: US (occurrence: US)
  Receive Date: 20220509
  Receipt Date: 20220509
  Transmission Date: 20220720
  Serious: No
  Sender: FDA-Public Use
  Company Number: US-ELI_LILLY_AND_COMPANY-US202205002577

PATIENT
  Sex: Female

DRUGS (1)
  1. BEBTELOVIMAB [Suspect]
     Active Substance: BEBTELOVIMAB
     Indication: Product used for unknown indication
     Dosage: UNK, SINGLE
     Route: 065
     Dates: start: 20220503, end: 20220503

REACTIONS (4)
  - Productive cough [Unknown]
  - Rhinorrhoea [Unknown]
  - Cough [Unknown]
  - Nervousness [Unknown]
